FAERS Safety Report 5455733-5 (Version None)
Quarter: 2007Q3

REPORT INFORMATION
  Report Type: 
  Country: None (occurrence: None)
  Receive Date: 20070914
  Receipt Date: 20070830
  Transmission Date: 20080115
  Serious: Yes (Death, Other)
  Sender: FDA-Public Use
  Company Number: 06H-163-0311542-00

PATIENT
  Age: 76 Year
  Sex: Female

DRUGS (3)
  1. PRECEDEX [Suspect]
     Indication: SEDATION
     Dosage: 1 UG/KG, ONCE, INTRAVENOUS
     Route: 042
     Dates: start: 20060101, end: 20060101
  2. VANCOMYCIN [Concomitant]
  3. ACTIVASE [Concomitant]

REACTIONS (15)
  - ARTERIOSCLEROSIS [None]
  - CARDIO-RESPIRATORY ARREST [None]
  - CARDIOMEGALY [None]
  - CORONARY ARTERY STENOSIS [None]
  - ERYTHEMA [None]
  - FOAMING AT MOUTH [None]
  - HYPOXIA [None]
  - LOSS OF CONSCIOUSNESS [None]
  - PROCEDURAL COMPLICATION [None]
  - PULMONARY EMBOLISM [None]
  - PULMONARY OEDEMA [None]
  - PULSE ABSENT [None]
  - SWELLING [None]
  - UNRESPONSIVE TO STIMULI [None]
  - VENTRICULAR FIBRILLATION [None]
